FAERS Safety Report 11941463 (Version 6)
Quarter: 2018Q4

REPORT INFORMATION
  Report Type: Spontaneous
  Country: PT (occurrence: PT)
  Receive Date: 20160122
  Receipt Date: 20181016
  Transmission Date: 20190204
  Serious: Yes (Death, Life-Threatening, Hospitalization, Other)
  Sender: FDA-Public Use
  Company Number: PT-B.I. PHARMACEUTICALS,INC./RIDGEFIELD-2016-BI-03441PO

PATIENT
  Age: 76 Year
  Sex: Female

DRUGS (7)
  1. PRADAXA [Suspect]
     Active Substance: DABIGATRAN ETEXILATE MESYLATE
     Indication: ATRIAL FIBRILLATION
     Route: 048
  2. ALPRAZOLAM. [Concomitant]
     Active Substance: ALPRAZOLAM
     Indication: URINARY INCONTINENCE
     Dosage: STREGTH:0.5 MG
     Route: 065
  3. TROSPIUM CHLORIDE. [Concomitant]
     Active Substance: TROSPIUM CHLORIDE
     Indication: BONE TUBERCULOSIS
     Route: 062
  4. HYDROCHLOROTHIAZIDE AND LISINOPRIL [Concomitant]
     Active Substance: HYDROCHLOROTHIAZIDE\LISINOPRIL
     Indication: PRODUCT USED FOR UNKNOWN INDICATION
     Route: 048
  5. LEGOFER [Concomitant]
     Active Substance: FERROUS SUCCINATE
     Indication: ANAEMIA
     Route: 048
     Dates: start: 20160118
  6. BUPRENORPHINE. [Concomitant]
     Active Substance: BUPRENORPHINE
     Indication: HYPERTENSION
     Route: 048
  7. LISINOPRIL. [Concomitant]
     Active Substance: LISINOPRIL
     Indication: PRODUCT USED FOR UNKNOWN INDICATION
     Route: 065

REACTIONS (10)
  - Hypotension [Unknown]
  - Shock haemorrhagic [Fatal]
  - Vomiting [Fatal]
  - Gastrointestinal haemorrhage [Not Recovered/Not Resolved]
  - Hypovolaemic shock [Fatal]
  - Melaena [Unknown]
  - Renal failure [Fatal]
  - Nausea [Fatal]
  - Abdominal pain [Fatal]
  - Blood creatinine abnormal [Fatal]

NARRATIVE: CASE EVENT DATE: 20160118
